FAERS Safety Report 19404813 (Version 2)
Quarter: 2021Q3

REPORT INFORMATION
  Report Type: Spontaneous
  Country: GB (occurrence: GB)
  Receive Date: 20210611
  Receipt Date: 20210707
  Transmission Date: 20211014
  Serious: Yes (Other)
  Sender: FDA-Public Use
  Company Number: GB-PFIZER INC-2021633594

PATIENT
  Age: 17 Year
  Sex: Female
  Weight: 74.84 kg

DRUGS (1)
  1. TOZINAMERAN. [Suspect]
     Active Substance: TOZINAMERAN
     Indication: COVID-19 IMMUNISATION
     Dosage: DOSE NUMBER UNKNOWN, SINGLE
     Dates: start: 20210527, end: 20210527

REACTIONS (5)
  - Chest pain [Unknown]
  - Headache [Recovering/Resolving]
  - Rash [Recovering/Resolving]
  - Anaphylactic reaction [Recovering/Resolving]
  - Wheezing [Unknown]

NARRATIVE: CASE EVENT DATE: 20210527
